FAERS Safety Report 13904022 (Version 1)
Quarter: 2017Q3

REPORT INFORMATION
  Report Type: Spontaneous
  Country: US (occurrence: US)
  Receive Date: 20170825
  Receipt Date: 20170825
  Transmission Date: 20171127
  Serious: No
  Sender: FDA-Public Use
  Company Number: US-B.I. PHARMACEUTICALS,INC./RIDGEFIELD-2017-BI-046049

PATIENT
  Sex: Female

DRUGS (1)
  1. TRAJENTA [Suspect]
     Active Substance: LINAGLIPTIN
     Indication: TYPE 2 DIABETES MELLITUS
     Route: 048
     Dates: start: 2016

REACTIONS (4)
  - Uterine leiomyoma [Unknown]
  - Blood potassium increased [Unknown]
  - Pain in extremity [Unknown]
  - Lichen sclerosus [Unknown]

NARRATIVE: CASE EVENT DATE: 2017
